FAERS Safety Report 19402081 (Version 2)
Quarter: 2021Q3

REPORT INFORMATION
  Report Type: Spontaneous
  Country: HR (occurrence: HR)
  Receive Date: 20210610
  Receipt Date: 20210806
  Transmission Date: 20211014
  Serious: Yes (Other)
  Sender: FDA-Public Use
  Company Number: NVSC2021HR125990

PATIENT
  Age: 56 Year
  Sex: Female

DRUGS (3)
  1. RIBOCICLIB. [Suspect]
     Active Substance: RIBOCICLIB
     Indication: BREAST CANCER
     Dosage: UNK
     Route: 065
     Dates: start: 201908, end: 20200519
  2. VITAMIN D [Concomitant]
     Active Substance: VITAMIN D NOS
     Indication: PRODUCT USED FOR UNKNOWN INDICATION
     Dosage: UNK
     Route: 065
     Dates: start: 201908
  3. RIBOCICLIB. [Suspect]
     Active Substance: RIBOCICLIB
     Dosage: 400 MG
     Route: 065
     Dates: start: 20200527

REACTIONS (12)
  - Metastases to bone [Unknown]
  - Weight increased [Unknown]
  - Mobility decreased [Unknown]
  - Scoliosis [Unknown]
  - Femoral neck fracture [Not Recovered/Not Resolved]
  - Arthralgia [Unknown]
  - Lumbar spinal stenosis [Unknown]
  - Spinal pain [Not Recovered/Not Resolved]
  - Dysstasia [Unknown]
  - Oedema peripheral [Unknown]
  - Glomerular filtration rate decreased [Recovering/Resolving]
  - Blood creatinine increased [Recovering/Resolving]

NARRATIVE: CASE EVENT DATE: 201909
